FAERS Safety Report 24566077 (Version 1)
Quarter: 2024Q4

REPORT INFORMATION
  Report Type: Spontaneous
  Country: US (occurrence: None)
  Receive Date: 20241029
  Receipt Date: 20241029
  Transmission Date: 20250115
  Serious: No
  Sender: Public
  Company Number: None

PATIENT
  Age: 67 Year
  Sex: Male

DRUGS (1)
  1. EMPAGLIFLOZIN [Suspect]
     Active Substance: EMPAGLIFLOZIN
     Dates: start: 20240628

REACTIONS (4)
  - Pollakiuria [None]
  - Urticaria [None]
  - Urticaria [None]
  - Urinary tract infection [None]

NARRATIVE: CASE EVENT DATE: 20240628
